FAERS Safety Report 9664068 (Version 1)
Quarter: 2013Q4

REPORT INFORMATION
  Report Type: Spontaneous
  Country: CL (occurrence: CL)
  Receive Date: 20131101
  Receipt Date: 20131101
  Transmission Date: 20140711
  Serious: Yes (Other)
  Sender: FDA-Public Use
  Company Number: CL-PFIZER INC-2013308272

PATIENT
  Age: 83 Year
  Sex: Male

DRUGS (6)
  1. XALATAN [Suspect]
     Indication: EYE DISORDER
     Dosage: UNK
     Route: 047
     Dates: start: 2005
  2. OMEPRAZOL [Concomitant]
  3. LOSARTAN POTASSIUM W/HYDROCHLOROTHIAZIDE [Concomitant]
  4. ASPIRINA [Concomitant]
  5. TAMSULOSIN HYDROCHLORIDE [Concomitant]
  6. CINNARIZINE [Concomitant]

REACTIONS (1)
  - Paraparesis [Not Recovered/Not Resolved]
